FAERS Safety Report 20280248 (Version 1)
Quarter: 2022Q1

REPORT INFORMATION
  Report Type: Spontaneous
  Country: IT (occurrence: IT)
  Receive Date: 20220103
  Receipt Date: 20220103
  Transmission Date: 20220423
  Serious: Yes (Hospitalization)
  Sender: FDA-Public Use
  Company Number: None

PATIENT
  Age: 8 Year
  Sex: Male
  Weight: 29 kg

DRUGS (1)
  1. ASPIRIN [Suspect]
     Active Substance: ASPIRIN
     Indication: Kawasaki^s disease
     Dosage: 1 DF, QD (GASTRO-RESISTANT TABLET)
     Route: 048
     Dates: start: 20200924, end: 20201008

REACTIONS (6)
  - Blister [Unknown]
  - Off label use [Unknown]
  - Rash erythematous [Unknown]
  - Rash maculo-papular [Unknown]
  - Rash pruritic [Unknown]
  - Drug hypersensitivity [Unknown]

NARRATIVE: CASE EVENT DATE: 20201004
